FAERS Safety Report 10394483 (Version 1)
Quarter: 2014Q3

REPORT INFORMATION
  Report Type: Spontaneous
  Country: BR (occurrence: BR)
  Receive Date: 20140819
  Receipt Date: 20140819
  Transmission Date: 20150326
  Serious: Yes (Hospitalization, Other)
  Sender: FDA-Public Use
  Company Number: BR-B.I. PHARMACEUTICALS,INC./RIDGEFIELD-2014-BI-38362PF

PATIENT
  Age: 71 Year
  Sex: Male
  Weight: 52 kg

DRUGS (33)
  1. SPIRIVA [Suspect]
     Active Substance: TIOTROPIUM BROMIDE MONOHYDRATE
     Indication: CHRONIC OBSTRUCTIVE PULMONARY DISEASE
     Dosage: 1 ANZ
     Route: 055
  2. PANTOPRAZOLE [Suspect]
     Active Substance: PANTOPRAZOLE SODIUM
     Indication: RENAL FAILURE CHRONIC
  3. DIOVAN [Suspect]
     Active Substance: VALSARTAN
     Indication: OFF LABEL USE
  4. DIOVAN AMLO FIX [Suspect]
     Active Substance: AMLODIPINE\VALSARTAN
     Indication: OFF LABEL USE
  5. PANTOPRAZOLE [Suspect]
     Active Substance: PANTOPRAZOLE SODIUM
     Indication: HYPERTENSION
     Dosage: 40 MG
     Route: 048
     Dates: start: 2011
  6. DIOVAN [Suspect]
     Active Substance: VALSARTAN
     Indication: HYPERTENSION
     Dosage: 160 MG
     Route: 048
     Dates: start: 2011
  7. AMLODIPINE [Suspect]
     Active Substance: AMLODIPINE BESYLATE
     Indication: OFF LABEL USE
  8. DIOVAN [Suspect]
     Active Substance: VALSARTAN
     Indication: RENAL FAILURE CHRONIC
  9. ENALAPRIL [Suspect]
     Active Substance: ENALAPRIL
     Indication: PRODUCT USED FOR UNKNOWN INDICATION
     Dosage: 10 MG
     Route: 065
  10. SINGULAIR [Suspect]
     Active Substance: MONTELUKAST SODIUM
     Indication: RENAL FAILURE CHRONIC
  11. DOMPERIDONE [Suspect]
     Active Substance: DOMPERIDONE
     Indication: RENAL FAILURE CHRONIC
  12. FOLIC ACID. [Suspect]
     Active Substance: FOLIC ACID
     Indication: RENAL FAILURE CHRONIC
  13. OXIMAX [Suspect]
     Active Substance: MOMETASONE FUROATE
     Indication: CHRONIC OBSTRUCTIVE PULMONARY DISEASE
     Dosage: 400 MG
     Route: 055
  14. DIOVAN AMLO FIX [Suspect]
     Active Substance: AMLODIPINE\VALSARTAN
     Indication: RENAL FAILURE CHRONIC
  15. DOMPERIDONE [Suspect]
     Active Substance: DOMPERIDONE
     Indication: OFF LABEL USE
  16. COMPLEX B [Suspect]
     Active Substance: CALCIUM PANTOTHENATE\CYANOCOBALAMIN\NIACINAMIDE\PYRIDOXINE HYDROCHLORIDE\RIBOFLAVIN\THIAMINE MONONITRATE
     Indication: OFF LABEL USE
  17. APRESOLIN [Suspect]
     Active Substance: HYDRALAZINE HYDROCHLORIDE
     Indication: RENAL FAILURE CHRONIC
     Dosage: 25 MG
     Route: 048
     Dates: start: 2011
  18. SINGULAIR [Suspect]
     Active Substance: MONTELUKAST SODIUM
     Indication: HYPERTENSION
     Dosage: 10 MG
     Route: 048
     Dates: start: 2011
  19. DOMPERIDONE [Suspect]
     Active Substance: DOMPERIDONE
     Indication: HYPERTENSION
     Dosage: 10 MG
     Route: 048
     Dates: start: 2011
  20. COMPLEX B [Suspect]
     Active Substance: CALCIUM PANTOTHENATE\CYANOCOBALAMIN\NIACINAMIDE\PYRIDOXINE HYDROCHLORIDE\RIBOFLAVIN\THIAMINE MONONITRATE
     Indication: HYPERTENSION
     Dosage: 10 MG
     Route: 048
     Dates: start: 2011
  21. DIOVAN AMLO FIX [Suspect]
     Active Substance: AMLODIPINE\VALSARTAN
     Indication: HYPERTENSION
     Dosage: DOSE PER APPLICATION AND DAILY DOSE: 1 DF (320/10MG)
     Route: 048
     Dates: end: 2011
  22. ENALAPRIL [Suspect]
     Active Substance: ENALAPRIL
     Dosage: 20 MG
     Route: 065
  23. COMPLEX B [Suspect]
     Active Substance: CALCIUM PANTOTHENATE\CYANOCOBALAMIN\NIACINAMIDE\PYRIDOXINE HYDROCHLORIDE\RIBOFLAVIN\THIAMINE MONONITRATE
     Indication: RENAL FAILURE CHRONIC
  24. DAXAS [Suspect]
     Active Substance: ROFLUMILAST
     Indication: HYPERTENSION
     Dosage: 1 ANZ
     Route: 048
     Dates: start: 2011
  25. APRESOLIN [Suspect]
     Active Substance: HYDRALAZINE HYDROCHLORIDE
     Indication: HYPERTENSION
     Dosage: 50 MG
     Route: 048
     Dates: start: 2011
  26. SINGULAIR [Suspect]
     Active Substance: MONTELUKAST SODIUM
     Indication: OFF LABEL USE
  27. FOLIC ACID. [Suspect]
     Active Substance: FOLIC ACID
     Indication: HYPERTENSION
     Dosage: 10 MG
     Route: 048
     Dates: start: 2011
  28. DAXAS [Suspect]
     Active Substance: ROFLUMILAST
     Indication: RENAL FAILURE CHRONIC
  29. APRESOLIN [Suspect]
     Active Substance: HYDRALAZINE HYDROCHLORIDE
     Indication: OFF LABEL USE
  30. ONBREZ [Suspect]
     Active Substance: INDACATEROL
     Indication: CHRONIC OBSTRUCTIVE PULMONARY DISEASE
     Dosage: 150 MCG
     Route: 055
     Dates: start: 2011
  31. AMLODIPINE [Suspect]
     Active Substance: AMLODIPINE BESYLATE
     Indication: HYPERTENSION
     Dosage: 10 MG
     Route: 048
     Dates: start: 2011
  32. AMLODIPINE [Suspect]
     Active Substance: AMLODIPINE BESYLATE
     Indication: RENAL FAILURE CHRONIC
  33. FOLIC ACID. [Suspect]
     Active Substance: FOLIC ACID
     Indication: OFF LABEL USE

REACTIONS (2)
  - Pneumonia [Recovered/Resolved]
  - Hypertension [Recovered/Resolved]

NARRATIVE: CASE EVENT DATE: 201309
